FAERS Safety Report 7294271 (Version 2)
Quarter: 2015Q1

REPORT INFORMATION
  Report Type: Spontaneous
  Country: DE (occurrence: None)
  Receive Date: 20090521
  Receipt Date: 20150102
  Transmission Date: 20150721
  Serious: Yes (Hospitalization)
  Sender: FDA-Public Use
  Company Number: 2009001401

PATIENT
  Age: 57 Year
  Sex: Male

DRUGS (7)
  1. PANTOPRAZOLE (PANTOPRAZOLE [Concomitant]
  2. AMPHO MORONAL [Concomitant]
  3. IBUPROFEN. [Concomitant]
     Active Substance: IBUPROFEN
  4. ICHTHYOL [Concomitant]
  5. TARGIN (NALOXONE HYDROCHLORIDE, OXYCODONE HYDROCHLORIDE) [Concomitant]
     Active Substance: NALOXONE HYDROCHLORIDE\OXYCODONE HYDROCHLORIDE
  6. RO 4858696 [Suspect]
     Active Substance: TEPROTUMUMAB
     Indication: NON-SMALL CELL LUNG CANCER
     Route: 042
     Dates: start: 20090403, end: 20090514
  7. TARCEVA [Suspect]
     Active Substance: ERLOTINIB HYDROCHLORIDE
     Indication: NON-SMALL CELL LUNG CANCER
     Route: 048
     Dates: start: 20090403

REACTIONS (4)
  - Mucosal inflammation [None]
  - Skin exfoliation [None]
  - General physical health deterioration [None]
  - Rectal abscess [None]

NARRATIVE: CASE EVENT DATE: 20090411
